FAERS Safety Report 6277478-4 (Version None)
Quarter: 2009Q3

REPORT INFORMATION
  Report Type: 
  Country: None (occurrence: None)
  Receive Date: 20090722
  Receipt Date: 20090710
  Transmission Date: 20100115
  Serious: Yes (Other)
  Sender: FDA-Public Use
  Company Number: GB-PFIZER INC-2009239144

PATIENT
  Age: 72 Year

DRUGS (2)
  1. CARDURA [Suspect]
     Dosage: 4 MG, UNK
  2. CARDURA [Suspect]
     Dosage: 2 MG, UNK
     Dates: start: 20090710

REACTIONS (2)
  - CATARACT [None]
  - PUPILLARY DISORDER [None]
